FAERS Safety Report 15722624 (Version 1)
Quarter: 2018Q4

REPORT INFORMATION
  Report Type: Spontaneous
  Country: US (occurrence: US)
  Receive Date: 20181213
  Receipt Date: 20181213
  Transmission Date: 20190205
  Serious: Yes (Other)
  Sender: FDA-Public Use
  Company Number: None

PATIENT
  Age: 70 Year
  Sex: Male
  Weight: 99.4 kg

DRUGS (2)
  1. CAMPTOSAR [Suspect]
     Active Substance: IRINOTECAN HYDROCHLORIDE
     Indication: PANCREATIC CARCINOMA
     Dosage: ?          OTHER FREQUENCY:EVERY 2 WEEKS;?
     Route: 041
  2. DEXTROSE 5% IN WATER [Concomitant]

REACTIONS (9)
  - Muscle twitching [None]
  - Blepharospasm [None]
  - Gait inability [None]
  - Infusion related reaction [None]
  - Tremor [None]
  - Blood pressure increased [None]
  - Tongue disorder [None]
  - Dysarthria [None]
  - Dysphagia [None]

NARRATIVE: CASE EVENT DATE: 20181022
